FAERS Safety Report 4654350-4 (Version None)
Quarter: 2005Q2

REPORT INFORMATION
  Report Type: 
  Country: None (occurrence: None)
  Receive Date: 20050404
  Receipt Date: 20041111
  Transmission Date: 20051028
  Serious: No
  Sender: FDA-Public Use
  Company Number: USA040876352

PATIENT
  Age: 31 Year
  Sex: Female
  Weight: 55 kg

DRUGS (4)
  1. ZYPREXA [Suspect]
     Indication: DEPRESSION
     Dosage: 7.5 MG DAY
     Dates: start: 20040701
  2. CYMBALTA [Suspect]
     Dosage: 30 MG DAY
     Dates: start: 20041108
  3. WELLBUTRIN [Concomitant]
  4. KLONOPIN [Concomitant]

REACTIONS (11)
  - ABDOMINAL DISTENSION [None]
  - DECREASED APPETITE [None]
  - DYSPHEMIA [None]
  - FAT REDISTRIBUTION [None]
  - FATIGUE [None]
  - FEAR [None]
  - FLAT AFFECT [None]
  - FLUID RETENTION [None]
  - SLEEP DISORDER [None]
  - THINKING ABNORMAL [None]
  - WEIGHT INCREASED [None]
